FAERS Safety Report 18163934 (Version 1)
Quarter: 2020Q3

REPORT INFORMATION
  Report Type: Spontaneous
  Country: US (occurrence: US)
  Receive Date: 20200818
  Receipt Date: 20200818
  Transmission Date: 20201103
  Serious: Yes (Hospitalization, Other)
  Sender: FDA-Public Use
  Company Number: US-OTSUKA-2018_039268

PATIENT
  Age: 49 Year
  Sex: Male

DRUGS (6)
  1. ABILIFY [Suspect]
     Active Substance: ARIPIPRAZOLE
     Indication: BIPOLAR I DISORDER
     Dosage: 15 MG, QHS
     Route: 048
  2. ABILIFY [Suspect]
     Active Substance: ARIPIPRAZOLE
     Indication: BLOOD PROLACTIN INCREASED
  3. LITHIUM. [Concomitant]
     Active Substance: LITHIUM
     Indication: ADVERSE DRUG REACTION
     Dosage: 400 MG, QD
     Route: 065
  4. RISPERDAL [Suspect]
     Active Substance: RISPERIDONE
     Indication: PRODUCT USED FOR UNKNOWN INDICATION
     Dosage: 2.5 MG, (DECREASE DOSE)
     Route: 065
  5. ABILIFY [Suspect]
     Active Substance: ARIPIPRAZOLE
     Indication: SCHIZOAFFECTIVE DISORDER
     Dosage: 5 MG, QD
     Route: 048
     Dates: start: 20180416
  6. TRIHEXYPHENIDYL [Concomitant]
     Active Substance: TRIHEXYPHENIDYL
     Indication: ADVERSE DRUG REACTION
     Dosage: UNK
     Route: 065

REACTIONS (21)
  - Post-traumatic stress disorder [Not Recovered/Not Resolved]
  - Night sweats [Unknown]
  - Gender dysphoria [Not Recovered/Not Resolved]
  - Feeling abnormal [Unknown]
  - Blood prolactin decreased [Unknown]
  - Sexual dysfunction [Unknown]
  - Erectile dysfunction [Unknown]
  - Psychotic disorder [Unknown]
  - Sleep apnoea syndrome [Unknown]
  - Condition aggravated [Not Recovered/Not Resolved]
  - Dysuria [Unknown]
  - Cough [Unknown]
  - Angina pectoris [Unknown]
  - Chromaturia [Recovered/Resolved]
  - Hot flush [Not Recovered/Not Resolved]
  - Disturbance in attention [Unknown]
  - Product label issue [Unknown]
  - Product use in unapproved indication [Unknown]
  - Cardiac hypertrophy [Unknown]
  - Thinking abnormal [Unknown]
  - Memory impairment [Not Recovered/Not Resolved]

NARRATIVE: CASE EVENT DATE: 2018
